FAERS Safety Report 24689647 (Version 2)
Quarter: 2024Q4

REPORT INFORMATION
  Report Type: Spontaneous
  Country: US (occurrence: US)
  Receive Date: 20241203
  Receipt Date: 20241219
  Transmission Date: 20250115
  Serious: Yes (Other)
  Sender: RANBAXY
  Company Number: US-SUN PHARMACEUTICAL INDUSTRIES LTD-2024R1-470129

PATIENT
  Sex: Female

DRUGS (2)
  1. ODOMZO [Suspect]
     Active Substance: SONIDEGIB
     Indication: Basal cell carcinoma
     Dosage: 200 MILLIGRAM, OD
     Route: 048
     Dates: start: 20240319
  2. LEVOCARNITINE [Concomitant]
     Active Substance: LEVOCARNITINE
     Indication: Muscle spasms
     Dosage: 500 MILLIGRAM, TID
     Route: 065

REACTIONS (10)
  - Urinary tract infection [Unknown]
  - Dysgeusia [Unknown]
  - Saliva altered [Unknown]
  - Asthenia [Unknown]
  - Fatigue [Unknown]
  - Food refusal [Unknown]
  - Stomatitis [Unknown]
  - Oropharyngeal pain [Unknown]
  - Abdominal pain upper [Unknown]
  - Muscle spasms [Unknown]
